FAERS Safety Report 19212767 (Version 1)
Quarter: 2021Q2

REPORT INFORMATION
  Report Type: Spontaneous
  Country: AR (occurrence: AR)
  Receive Date: 20210504
  Receipt Date: 20210504
  Transmission Date: 20210717
  Serious: Yes (Other)
  Sender: FDA-Public Use
  Company Number: NVSC2021AR097658

PATIENT
  Sex: Female

DRUGS (2)
  1. ANAFRANIL [Suspect]
     Active Substance: CLOMIPRAMINE HYDROCHLORIDE
     Indication: ANXIETY
     Dosage: 2 DF, QD (2 X 25 MG)
     Route: 065
  2. ANAFRANIL [Suspect]
     Active Substance: CLOMIPRAMINE HYDROCHLORIDE
     Indication: DEPRESSION
     Dosage: 1 DF, QD (1 X 75 MG)
     Route: 065

REACTIONS (9)
  - Hypertension [Unknown]
  - Fear [Unknown]
  - Mood altered [Not Recovered/Not Resolved]
  - Crying [Unknown]
  - Eating disorder [Unknown]
  - Fatigue [Unknown]
  - Hyperglycaemia [Unknown]
  - Drug withdrawal syndrome [Not Recovered/Not Resolved]
  - Drug ineffective [Unknown]
